FAERS Safety Report 12736507 (Version 1)
Quarter: 2016Q3

REPORT INFORMATION
  Report Type: Spontaneous
  Country: US (occurrence: US)
  Receive Date: 20160913
  Receipt Date: 20160913
  Transmission Date: 20161109
  Serious: No
  Sender: FDA-Public Use
  Company Number: US-TEVA-683232USA

PATIENT
  Sex: Female

DRUGS (1)
  1. MIMVEY LO [Suspect]
     Active Substance: ESTRADIOL\NORETHINDRONE ACETATE
     Dosage: 1 MG / 0.5 MG
     Route: 065

REACTIONS (3)
  - Drug ineffective [Unknown]
  - Hot flush [Unknown]
  - Drug effect decreased [Unknown]

NARRATIVE: CASE EVENT DATE: 20160512
